FAERS Safety Report 10990237 (Version 1)
Quarter: 2015Q1

REPORT INFORMATION
  Report Type: Spontaneous
  Country: US (occurrence: None)
  Receive Date: 20150226
  Receipt Date: 20150226
  Transmission Date: 20150721
  Serious: Yes (Other)
  Sender: FDA-Public Use
  Company Number: TPA2012A06142

PATIENT
  Age: 64 Year
  Sex: Male
  Weight: 107.96 kg

DRUGS (11)
  1. ACTOPLUS MET [Suspect]
     Active Substance: METFORMIN HYDROCHLORIDE\PIOGLITAZONE HYDROCHLORIDE
     Route: 048
     Dates: start: 20080617, end: 201008
  2. ULORIC [Suspect]
     Active Substance: FEBUXOSTAT
  3. LISINOPRIL. [Concomitant]
     Active Substance: LISINOPRIL
  4. LORTAB 10 (PARACETAMOL, HYDROCODONE BITARTRATE) [Concomitant]
  5. DIOVAN HCL (HYDROCHLOROTHIAZIDE, VALSARTAN) [Concomitant]
  6. JANUVIA [Concomitant]
     Active Substance: SITAGLIPTIN PHOSPHATE
  7. ZITHROMAX TRI-PAK (AZITHROMYCIN) [Concomitant]
  8. NORCO (PARACETAMOL, HYDROCODONE BITARTRATE) [Concomitant]
  9. NIZORAL (KIETOCONAZOLE) [Concomitant]
  10. METFORMIN HCL (METFORMIN HYDROCHLORIDE) [Concomitant]
  11. ALLOPURINOL (ALLOPURINOL) [Suspect]
     Active Substance: ALLOPURINOL

REACTIONS (4)
  - Weight decreased [None]
  - Bladder cancer [None]
  - Liver disorder [None]
  - Fatigue [None]

NARRATIVE: CASE EVENT DATE: 20130508
